FAERS Safety Report 4753985-8 (Version None)
Quarter: 2005Q3

REPORT INFORMATION
  Report Type: 
  Country: None (occurrence: None)
  Receive Date: 20050826
  Receipt Date: 20050812
  Transmission Date: 20060218
  Serious: Yes (Other)
  Sender: FDA-Public Use
  Company Number: 2005115199

PATIENT
  Age: 44 Year
  Sex: Male
  Weight: 79.8331 kg

DRUGS (7)
  1. RELPAX [Suspect]
     Indication: ILL-DEFINED DISORDER
     Dates: start: 20050812
  2. SINEQUAN [Suspect]
     Indication: ILL-DEFINED DISORDER
     Dates: start: 20050812
  3. ANTIVERT [Suspect]
     Indication: ILL-DEFINED DISORDER
     Dates: start: 20050812
  4. CARDURA [Suspect]
     Indication: ILL-DEFINED DISORDER
     Dates: start: 20050812
  5. XANAX [Concomitant]
  6. VIAGRA [Concomitant]
  7. ZYREC-D 12 HOUR CERTIRIZINE) [Concomitant]

REACTIONS (4)
  - DIZZINESS [None]
  - FEELING ABNORMAL [None]
  - MALAISE [None]
  - WRONG DRUG ADMINISTERED [None]
